FAERS Safety Report 8458764-6 (Version None)
Quarter: 2012Q2

REPORT INFORMATION
  Report Type: 
  Country: None (occurrence: None)
  Receive Date: 20120622
  Receipt Date: 20120612
  Transmission Date: 20120825
  Serious: Yes (Other)
  Sender: FDA-Public Use
  Company Number: JP-ELI_LILLY_AND_COMPANY-JP201206000483

PATIENT
  Age: 78 Year
  Sex: Female

DRUGS (29)
  1. PREDNISOLONE [Concomitant]
     Dosage: UNK
     Route: 048
     Dates: start: 20120529
  2. PREDNISOLONE [Concomitant]
     Dosage: UNK
     Route: 048
     Dates: start: 20120424
  3. LANSOPRAZOLE [Concomitant]
     Dosage: UNK
     Route: 048
  4. WARFARIN POTASSIUM [Concomitant]
     Dosage: UNK
  5. DIAZEPAM [Concomitant]
     Dosage: UNK
  6. FERROUS CITRATE [Concomitant]
     Dosage: UNK
     Dates: start: 20120529
  7. VERAPAMIL HCL [Concomitant]
     Dosage: UNK
  8. VITAMIN B12 [Concomitant]
     Dosage: UNK
  9. WARFARIN POTASSIUM [Concomitant]
     Dosage: UNK
  10. PREDNISOLONE [Concomitant]
     Indication: RHEUMATOID ARTHRITIS
     Dosage: UNK
     Route: 048
  11. PREDNISOLONE [Concomitant]
     Dosage: UNK
     Route: 048
     Dates: start: 20120424
  12. PREDNISOLONE [Concomitant]
     Dosage: UNK
     Route: 048
     Dates: start: 20120529
  13. PREDNISOLONE [Concomitant]
     Dosage: UNK
     Route: 048
     Dates: start: 20120508
  14. COTRIM [Concomitant]
     Dosage: UNK
     Route: 048
  15. ADONA [Concomitant]
     Dosage: UNK
  16. MUCOSTA [Concomitant]
     Dosage: UNK
  17. MICARDIS [Concomitant]
     Dosage: UNK
  18. WARFARIN POTASSIUM [Concomitant]
     Dosage: UNK
  19. KETOPROFEN [Concomitant]
     Dosage: UNK
     Route: 062
  20. FOLIAMIN [Concomitant]
     Dosage: UNK
     Route: 048
     Dates: start: 20120508
  21. FORTEO [Suspect]
     Dosage: UNK
     Route: 058
     Dates: start: 20120301
  22. BUPRENORPHINE [Concomitant]
     Indication: NEURALGIA
     Dosage: UNK
     Route: 062
  23. MAGNESIUM OXIDE [Concomitant]
     Dosage: UNK
     Route: 048
  24. FUNGIZONE [Concomitant]
     Dosage: UNK
     Route: 048
  25. RHEUMATREX [Concomitant]
     Indication: RHEUMATOID ARTHRITIS
     Dosage: UNK
     Route: 048
  26. PREDNISOLONE [Concomitant]
     Dosage: UNK
     Route: 048
     Dates: start: 20120508
  27. PREDNISOLONE [Concomitant]
     Indication: RHEUMATOID ARTHRITIS
     Dosage: UNK
     Route: 048
  28. LENDORMIN [Concomitant]
     Dosage: UNK
     Route: 048
  29. RHEUMATREX [Concomitant]
     Dosage: UNK
     Route: 048
     Dates: start: 20120508

REACTIONS (6)
  - ARTHRALGIA [None]
  - PULMONARY FIBROSIS [None]
  - RHEUMATOID ARTHRITIS [None]
  - C-REACTIVE PROTEIN INCREASED [None]
  - OEDEMA PERIPHERAL [None]
  - JOINT SWELLING [None]
